FAERS Safety Report 6994077-7 (Version None)
Quarter: 2010Q3

REPORT INFORMATION
  Report Type: 
  Country: None (occurrence: None)
  Receive Date: 20100917
  Receipt Date: 20100128
  Transmission Date: 20110219
  Serious: No
  Sender: FDA-Public Use
  Company Number: US-ASTRAZENECA-2007UW14119

PATIENT
  Age: 43 Year
  Sex: Female
  Weight: 44.5 kg

DRUGS (37)
  1. SEROQUEL [Suspect]
     Indication: BIPOLAR DISORDER
     Dosage: 50 MG TO 100 MG
     Route: 048
     Dates: start: 20000201, end: 20060701
  2. SEROQUEL [Suspect]
     Indication: DEPRESSION
     Dosage: 50 MG TO 100 MG
     Route: 048
     Dates: start: 20000201, end: 20060701
  3. SEROQUEL [Suspect]
     Route: 048
     Dates: start: 20000218
  4. SEROQUEL [Suspect]
     Route: 048
     Dates: start: 20000218
  5. SEROQUEL [Suspect]
     Dosage: 50-100 MG
     Route: 048
     Dates: start: 20010502, end: 20051201
  6. SEROQUEL [Suspect]
     Dosage: 50-100 MG
     Route: 048
     Dates: start: 20010502, end: 20051201
  7. SEROQUEL [Suspect]
     Dosage: 50 MG THREE TIMES A DAY AND 200 MG Q HS
     Route: 048
  8. SEROQUEL [Suspect]
     Dosage: 50 MG THREE TIMES A DAY AND 200 MG Q HS
     Route: 048
  9. SEROQUEL [Suspect]
     Route: 048
  10. SEROQUEL [Suspect]
     Route: 048
  11. ZYPREXA [Concomitant]
     Indication: BIPOLAR DISORDER
     Dosage: 2.5 MG TO 10 MG
     Dates: start: 20010501, end: 20040401
  12. ASPIRIN [Concomitant]
     Route: 048
  13. ASPIRIN [Concomitant]
     Route: 048
  14. CYMBALTA [Concomitant]
     Route: 048
     Dates: start: 20060101
  15. LANSOPRAZOLE [Concomitant]
     Route: 048
  16. ATENOLOL [Concomitant]
     Route: 065
  17. LIPITOR [Concomitant]
     Route: 065
  18. WELLBUTRIN [Concomitant]
     Dosage: TAKE ONE TABLET EVERY MORNING FOR 7 DAYS THEN TWICE DAILY
     Route: 048
  19. METHYLPREDNISOLONE [Concomitant]
     Route: 048
  20. NADOLOL [Concomitant]
     Route: 048
  21. ESTRADIOL [Concomitant]
     Route: 048
  22. AMBIEN [Concomitant]
     Route: 048
  23. ALBUTEROL [Concomitant]
     Dosage: 2 PUFFS FOUR TIMES A DAY
     Route: 048
  24. METFORMIN [Concomitant]
     Route: 048
  25. ATIVAN [Concomitant]
     Dosage: 1 TO 2 MG THREE TIMES A DAY
     Route: 048
  26. ZOLOFT [Concomitant]
     Route: 048
  27. CLONAZEPAM [Concomitant]
     Route: 048
  28. RISPERDAL [Concomitant]
     Indication: BIPOLAR DISORDER
     Dosage: 1 MG TO 2 MG
     Dates: start: 20010201, end: 20010501
  29. RISPERDAL [Concomitant]
     Route: 048
  30. RISPERDAL [Concomitant]
     Route: 048
  31. ULTRAM [Concomitant]
     Indication: PAIN
     Route: 048
  32. SERZONE [Concomitant]
     Dosage: 200 ONE TO THREE Q DAY
     Route: 065
  33. DOXEPIN HCL [Concomitant]
     Route: 048
  34. DEPAKOTE [Concomitant]
     Route: 048
  35. GEODON [Concomitant]
     Route: 048
  36. GEODON [Concomitant]
     Route: 048
  37. PROZAC [Concomitant]

REACTIONS (6)
  - CHRONIC OBSTRUCTIVE PULMONARY DISEASE [None]
  - DIABETES MELLITUS [None]
  - GASTROOESOPHAGEAL REFLUX DISEASE [None]
  - HYPERLIPIDAEMIA [None]
  - HYPERTENSION [None]
  - TYPE 2 DIABETES MELLITUS [None]
